FAERS Safety Report 4550631-3 (Version None)
Quarter: 2004Q4

REPORT INFORMATION
  Report Type: 
  Country: None (occurrence: None)
  Receive Date: 20041227
  Receipt Date: 20040910
  Transmission Date: 20050328
  Serious: No
  Sender: FDA-Public Use
  Company Number: 04P-163-0272918-00

PATIENT
  Age: 39 Year
  Sex: Female

DRUGS (9)
  1. HUMIRA [Suspect]
     Indication: RHEUMATOID ARTHRITIS
     Dosage: 40 MG, 1 IN 2 WK, SUBCUTANEOUS
     Route: 058
     Dates: start: 20040902
  2. ESOMEPRAZOLE [Concomitant]
  3. ATORVASTATIN [Concomitant]
  4. BUSPIRONE HCL [Concomitant]
  5. CITALOPRAM HYDROBROMIDE [Concomitant]
  6. TRAZODONE HCL [Concomitant]
  7. CONJUGATED ESTROGENS [Concomitant]
  8. TOCOPHEROL CONCENTRATE CAP [Concomitant]
  9. ASCORBIC ACID [Concomitant]

REACTIONS (4)
  - CONDITION AGGRAVATED [None]
  - JOINT STIFFNESS [None]
  - NASOPHARYNGITIS [None]
  - URTICARIA [None]
